FAERS Safety Report 4616601-1 (Version None)
Quarter: 2005Q1

REPORT INFORMATION
  Report Type: 
  Country: None (occurrence: None)
  Receive Date: 20050318
  Receipt Date: 20050302
  Transmission Date: 20050727
  Serious: Yes (Death)
  Sender: FDA-Public Use
  Company Number: L04-USA-07403-32

PATIENT
  Age: 30 Year
  Sex: Female
  Weight: 68.0396 kg

DRUGS (4)
  1. LEXAPRO [Suspect]
  2. FLUOXETINE HCL [Suspect]
  3. LIOTHYRONINE SODIUM [Suspect]
  4. LAMOTRIGINE [Suspect]

REACTIONS (19)
  - AGGRESSION [None]
  - ASPIRATION [None]
  - BLOOD BICARBONATE DECREASED [None]
  - BLOOD CHLORIDE INCREASED [None]
  - BLOOD CREATINE PHOSPHOKINASE INCREASED [None]
  - BLOOD GLUCOSE INCREASED [None]
  - BLOOD PH DECREASED [None]
  - COMA [None]
  - COMPLETED SUICIDE [None]
  - DRUG SCREEN POSITIVE [None]
  - DYSKINESIA [None]
  - GENERAL PHYSICAL HEALTH DETERIORATION [None]
  - HYPERHIDROSIS [None]
  - INTENTIONAL MISUSE [None]
  - MUSCLE TWITCHING [None]
  - PCO2 INCREASED [None]
  - PETIT MAL EPILEPSY [None]
  - PO2 INCREASED [None]
  - TACHYCARDIA [None]
